FAERS Safety Report 7727164-6 (Version None)
Quarter: 2011Q3

REPORT INFORMATION
  Report Type: 
  Country: None (occurrence: None)
  Receive Date: 20110902
  Receipt Date: 20110829
  Transmission Date: 20111222
  Serious: Yes (Other)
  Sender: FDA-Public Use
  Company Number: US-ELI_LILLY_AND_COMPANY-US201107001488

PATIENT
  Sex: Male
  Weight: 136.5 kg

DRUGS (17)
  1. METFORMIN HCL [Concomitant]
     Indication: DIABETES MELLITUS
     Dosage: 1000 MG, BID
     Route: 048
     Dates: start: 20100215
  2. NEURONTIN [Concomitant]
     Indication: NEURALGIA
     Dosage: 100 MG, PRN
     Dates: start: 20011209
  3. FOLIC ACID [Concomitant]
     Dosage: 2 MG, QD
     Route: 048
     Dates: start: 20091026
  4. BYETTA [Suspect]
     Dosage: 10 UG, BID
     Route: 058
     Dates: start: 20081223, end: 20110621
  5. HYDROCHLOROTHIAZIDE [Concomitant]
     Indication: DIURETIC THERAPY
     Dosage: 25 MG, QD
     Route: 048
     Dates: start: 20110412
  6. ALTACE [Concomitant]
     Indication: HYPERTENSION
     Dosage: 10 MG, BID
     Route: 048
     Dates: start: 20110322
  7. ZETIA [Concomitant]
     Indication: BLOOD CHOLESTEROL
     Dosage: 10 MG, QD
     Route: 048
     Dates: start: 20100215
  8. METOPROLOL SUCCINATE [Concomitant]
     Dosage: 50 MG, QD
     Route: 048
     Dates: start: 20110322
  9. NIASPAN [Concomitant]
     Indication: BLOOD CHOLESTEROL
     Dosage: 1000 MG, EACH EVENING
     Route: 048
     Dates: start: 20091026
  10. BYETTA [Suspect]
     Indication: TYPE 2 DIABETES MELLITUS
     Dosage: 5 UG, BID
     Route: 058
     Dates: start: 20081121, end: 20081223
  11. NITROGLYCERIN [Concomitant]
     Indication: CHEST PAIN
     Dosage: 0.4 MG, PRN
     Route: 060
     Dates: start: 20110322
  12. ALLOPURINOL [Concomitant]
     Indication: GOUT
     Dosage: 300 MG, QD
     Route: 048
     Dates: start: 20110322
  13. ASPIRIN [Concomitant]
     Indication: PROPHYLAXIS
     Dosage: 81 MG, QD
     Route: 048
     Dates: start: 20091026
  14. NASONEX [Concomitant]
     Indication: HYPERSENSITIVITY
     Dosage: 50 UG, BID
     Route: 045
     Dates: start: 20100426
  15. TRICOR [Concomitant]
     Indication: BLOOD TRIGLYCERIDES
     Dosage: 145 MG, QD
     Route: 048
     Dates: start: 20100104
  16. PROTONIX [Concomitant]
     Indication: GASTROOESOPHAGEAL REFLUX DISEASE
     Dosage: 40 MG, QD
     Route: 048
     Dates: start: 20100215
  17. ZYRTEC [Concomitant]
     Indication: HYPERSENSITIVITY
     Dosage: 10 MG, QD
     Route: 048
     Dates: start: 20100215

REACTIONS (2)
  - WEIGHT DECREASED [None]
  - PANCREATITIS [None]
